FAERS Safety Report 10573197 (Version 2)
Quarter: 2014Q4

REPORT INFORMATION
  Report Type: Spontaneous
  Country: US (occurrence: US)
  Receive Date: 20141110
  Receipt Date: 20141120
  Transmission Date: 20150529
  Serious: Yes (Death, Life-Threatening, Hospitalization, Other)
  Sender: FDA-Public Use
  Company Number: US-009507513-1411USA003239

PATIENT
  Sex: Female
  Weight: 81.63 kg

DRUGS (1)
  1. JANUMET [Suspect]
     Active Substance: METFORMIN HYDROCHLORIDE\SITAGLIPTIN PHOSPHATE
     Indication: TYPE 2 DIABETES MELLITUS
     Dosage: 50-500 MG, BID
     Route: 048
     Dates: start: 20120119, end: 20130104

REACTIONS (27)
  - Catheter placement [Unknown]
  - Pruritus [Unknown]
  - Hyperglycaemia [Unknown]
  - Salpingo-oophorectomy bilateral [Unknown]
  - Constipation [Unknown]
  - Cervix carcinoma stage 0 [Unknown]
  - Metastases to bone [Unknown]
  - Dementia Alzheimer^s type [Unknown]
  - Haemorrhoids [Unknown]
  - Metastases to liver [Unknown]
  - Drug ineffective [Unknown]
  - Drug ineffective [Unknown]
  - Constipation [Unknown]
  - Glaucoma [Unknown]
  - Inflammation [Unknown]
  - Catheter placement [Unknown]
  - Neuropathy peripheral [Unknown]
  - Neuropathy peripheral [Unknown]
  - Large intestine polyp [Unknown]
  - Granuloma [Unknown]
  - Pancreatic carcinoma metastatic [Fatal]
  - Metastases to lung [Unknown]
  - Decreased appetite [Unknown]
  - Anaemia [Unknown]
  - Amnesia [Unknown]
  - Tonsillectomy [Unknown]
  - Cerebral atrophy [Unknown]

NARRATIVE: CASE EVENT DATE: 2012
